FAERS Safety Report 7541707-7 (Version None)
Quarter: 2011Q2

REPORT INFORMATION
  Report Type: 
  Country: None (occurrence: None)
  Receive Date: 20110613
  Receipt Date: 20110608
  Transmission Date: 20111010
  Serious: No
  Sender: FDA-Public Use
  Company Number: US-PFIZER INC-2011125414

PATIENT
  Sex: Male
  Weight: 79.365 kg

DRUGS (3)
  1. ACCURETIC [Concomitant]
     Indication: HYPERTENSION
     Dosage: UNK
  2. NORVASC [Suspect]
     Indication: HYPERTENSION
     Dosage: 1X/DAY
     Route: 048
     Dates: start: 20010401
  3. LIPITOR [Concomitant]
     Indication: BLOOD CHOLESTEROL INCREASED
     Dosage: UNK

REACTIONS (1)
  - POLLAKIURIA [None]
